FAERS Safety Report 5622029-8 (Version None)
Quarter: 2008Q1

REPORT INFORMATION
  Report Type: 
  Country: None (occurrence: None)
  Receive Date: 20080211
  Receipt Date: 20080131
  Transmission Date: 20080703
  Serious: Yes (Other)
  Sender: FDA-Public Use
  Company Number: US-JNJFOC-20070701804

PATIENT
  Sex: Female
  Weight: 50.35 kg

DRUGS (22)
  1. DURAGESIC-100 [Suspect]
     Route: 062
  2. DURAGESIC-100 [Suspect]
     Route: 062
  3. DURAGESIC-100 [Suspect]
     Route: 062
  4. DURAGESIC-100 [Suspect]
     Route: 062
  5. DURAGESIC-100 [Suspect]
     Route: 062
  6. DURAGESIC-100 [Suspect]
     Route: 062
  7. DURAGESIC-100 [Suspect]
     Route: 062
  8. DURAGESIC-100 [Suspect]
     Dosage: 2X100UG/HR PATCHES
     Route: 062
  9. DURAGESIC-100 [Suspect]
     Indication: PAIN
     Route: 062
  10. PROVERA [Concomitant]
     Indication: HORMONE REPLACEMENT THERAPY
     Route: 048
  11. ZYRTEC [Concomitant]
     Indication: RHINITIS ALLERGIC
     Route: 048
  12. LOMOTIL [Concomitant]
     Route: 065
  13. PROMETHAZINE [Concomitant]
     Route: 065
  14. NORVASC [Concomitant]
     Indication: HYPERTENSION
     Route: 048
  15. PREMARIN [Concomitant]
     Indication: HORMONE REPLACEMENT THERAPY
     Route: 048
  16. NEXIUM [Concomitant]
     Indication: GASTROOESOPHAGEAL REFLUX DISEASE
     Route: 048
  17. CLONIDINE [Concomitant]
     Indication: BLOOD PRESSURE
     Route: 048
  18. AVAPRO [Concomitant]
     Indication: BLOOD PRESSURE
     Route: 048
  19. DARVOCET-N 100 [Concomitant]
     Indication: PAIN
     Dosage: 100-650MG, AS NEEDED
     Route: 048
  20. BONIVA [Concomitant]
     Indication: OSTEOPOROSIS
     Route: 048
  21. CALCIUM GLUCONATE [Concomitant]
     Indication: OSTEOPOROSIS
     Dosage: 600-200MG
     Route: 048
  22. BENICAR HCT [Concomitant]
     Indication: HYPERTENSION
     Dosage: 25-40MG
     Route: 048

REACTIONS (10)
  - APPLICATION SITE ULCER [None]
  - CHEST DISCOMFORT [None]
  - DYSPNOEA [None]
  - MALAISE [None]
  - MULTIPLE SCLEROSIS [None]
  - PAIN [None]
  - PRURITUS [None]
  - RASH [None]
  - TREATMENT NONCOMPLIANCE [None]
  - WITHDRAWAL SYNDROME [None]
